FAERS Safety Report 8615104-7 (Version None)
Quarter: 2012Q3

REPORT INFORMATION
  Report Type: 
  Country: None (occurrence: None)
  Receive Date: 20120823
  Receipt Date: 20120820
  Transmission Date: 20120928
  Serious: Yes (Death)
  Sender: FDA-Public Use
  Company Number: US-CELGENEUS-163-21880-12063353

PATIENT
  Sex: Male
  Weight: 84.898 kg

DRUGS (13)
  1. MULTI-VITAMINS [Concomitant]
     Dosage: 1 TABLET
     Route: 048
  2. VITAMIN D [Concomitant]
     Route: 048
  3. REVLIMID [Suspect]
     Dosage: 25 MILLIGRAM
     Route: 048
     Dates: start: 20101118
  4. PERCOCET [Concomitant]
     Indication: PAIN
     Dosage: 1-2 TABS
     Route: 048
  5. FILGRASTIM [Concomitant]
     Dosage: 480 MICROGRAM
     Route: 058
  6. ASCORBIC ACID [Concomitant]
     Dosage: 500 MILLIGRAM
     Route: 048
  7. ZOLPIDEM TARTRATE [Concomitant]
     Indication: SLEEP DISORDER
     Dosage: 10 MILLIGRAM
     Route: 048
  8. CITALOPRAM HYDROBROMIDE [Concomitant]
     Dosage: 20 MILLIGRAM
     Route: 048
  9. ASPIRIN [Concomitant]
     Indication: THROMBOSIS PROPHYLAXIS
     Dosage: 325 MILLIGRAM
     Route: 048
     Dates: start: 20101118, end: 20110829
  10. ASPIRIN [Concomitant]
     Indication: ANTICOAGULANT THERAPY
  11. CIPROFLOXACIN HCL [Concomitant]
     Dosage: 1000 MILLIGRAM
     Route: 048
  12. METHADONE HCL [Concomitant]
     Dosage: 1.5
     Route: 048
  13. REVLIMID [Suspect]
     Dosage: 10 MILLIGRAM
     Route: 048
     Dates: end: 20110513

REACTIONS (1)
  - ACUTE MYELOID LEUKAEMIA [None]
